FAERS Safety Report 12876401 (Version 2)
Quarter: 2016Q4

REPORT INFORMATION
  Report Type: Spontaneous
  Country: US (occurrence: US)
  Receive Date: 20161024
  Receipt Date: 20161025
  Transmission Date: 20170207
  Serious: Yes (Other)
  Sender: FDA-Public Use
  Company Number: US-BAYER-2016-198598

PATIENT
  Age: 63 Year
  Sex: Male
  Weight: 68.27 kg

DRUGS (7)
  1. BAYER GENUINE ASPIRIN [Suspect]
     Active Substance: ASPIRIN
     Indication: PAIN
     Dosage: 1 DF, UNK
     Route: 048
  2. VITAMIN D [Concomitant]
     Active Substance: CHOLECALCIFEROL
  3. FISH OIL [Concomitant]
     Active Substance: FISH OIL
  4. ANDROGEL [Concomitant]
     Active Substance: TESTOSTERONE
  5. MELOXICAM. [Concomitant]
     Active Substance: MELOXICAM
  6. ZICAM NOS [Concomitant]
     Active Substance: ACETAMINOPHEN\CHLORPHENIRAMINE MALEATE\DEXTROMETHORPHAN HYDROBROMIDE\PHENYLEPHRINE HYDROCHLORIDE OR ACETAMINOPHEN\DEXTROMETHORPHAN HYDROBROMIDE\DOXYLAMINE SUCCINATE\PHENYLEPHRINE HYDROCHLORIDE
  7. BAYER LOW DOSE [Suspect]
     Active Substance: ASPIRIN
     Dosage: 1 DF, UNK
     Route: 048
     Dates: start: 20160412, end: 20161013

REACTIONS (5)
  - Weight decreased [Unknown]
  - Dyspepsia [Unknown]
  - Haemorrhage [Unknown]
  - Off label use [Unknown]
  - Therapeutic response unexpected [Unknown]
